FAERS Safety Report 7993715-X (Version None)
Quarter: 2011Q4

REPORT INFORMATION
  Report Type: 
  Country: None (occurrence: None)
  Receive Date: 20111220
  Receipt Date: 20111208
  Transmission Date: 20120403
  Serious: Yes (Other)
  Sender: FDA-Public Use
  Company Number: US-RANBAXY-2011US-51099

PATIENT
  Age: 53 Year
  Sex: Male

DRUGS (5)
  1. FLECAINIDE ACETATE [Suspect]
     Dosage: 100 MG, BID
     Route: 065
  2. FLECAINIDE ACETATE [Suspect]
     Indication: ATRIAL FIBRILLATION
     Dosage: 50 MG, BID
     Route: 065
  3. FLECAINIDE ACETATE [Suspect]
     Dosage: 600 MG, SINGLE
     Route: 065
  4. SOLATOL [Concomitant]
     Indication: PRODUCT USED FOR UNKNOWN INDICATION
     Dosage: UNK
     Route: 065
  5. FLECAINIDE ACETATE [Suspect]
     Dosage: 150 MG, BID
     Route: 065

REACTIONS (3)
  - INTENTIONAL OVERDOSE [None]
  - ELECTROCARDIOGRAM ABNORMAL [None]
  - THERAPEUTIC RESPONSE DECREASED [None]
